FAERS Safety Report 7102606-8 (Version None)
Quarter: 2010Q4

REPORT INFORMATION
  Report Type: 
  Country: None (occurrence: None)
  Receive Date: 20101115
  Receipt Date: 20101108
  Transmission Date: 20110411
  Serious: Yes (Hospitalization, Congenital Anomaly)
  Sender: FDA-Public Use
  Company Number: A0892165A

PATIENT
  Sex: Male
  Weight: 2.7 kg

DRUGS (1)
  1. PAXIL [Suspect]
     Indication: DEPRESSION

REACTIONS (6)
  - DRUG EXPOSURE DURING PREGNANCY [None]
  - EYELID PTOSIS [None]
  - IATROGENIC INJURY [None]
  - MATERNAL DRUGS AFFECTING FOETUS [None]
  - PULMONARY ARTERY STENOSIS CONGENITAL [None]
  - TRICUSPID VALVE INCOMPETENCE [None]
